FAERS Safety Report 9324707 (Version 2)
Quarter: 2013Q2

REPORT INFORMATION
  Report Type: Spontaneous
  Country: ES (occurrence: ES)
  Receive Date: 20130603
  Receipt Date: 20130613
  Transmission Date: 20140414
  Serious: Yes (Hospitalization)
  Sender: FDA-Public Use
  Company Number: ES-VIIV HEALTHCARE LIMITED-B0896240A

PATIENT
  Age: 51 Year
  Sex: Female

DRUGS (3)
  1. KIVEXA [Suspect]
     Indication: HIV INFECTION
     Dosage: 1TAB PER DAY
     Route: 048
     Dates: start: 20130417, end: 20130521
  2. TRUVADA [Concomitant]
  3. INVIRASE [Concomitant]

REACTIONS (11)
  - Hepatitis acute [Recovering/Resolving]
  - Dyspepsia [Unknown]
  - Abdominal pain [Unknown]
  - Nausea [Unknown]
  - Jaundice [Unknown]
  - Vomiting [Unknown]
  - Decreased appetite [Unknown]
  - Deficiency of bile secretion [Unknown]
  - Choluria [Unknown]
  - Asthenia [Unknown]
  - Pyrexia [Unknown]
